FAERS Safety Report 19103686 (Version 1)
Quarter: 2021Q2

REPORT INFORMATION
  Report Type: Spontaneous
  Country: FR (occurrence: FR)
  Receive Date: 20210407
  Receipt Date: 20210407
  Transmission Date: 20210717
  Serious: Yes (Other)
  Sender: FDA-Public Use
  Company Number: FR-PFIZER INC-2020228629

PATIENT
  Age: 83 Year
  Sex: Female
  Weight: 78 kg

DRUGS (15)
  1. L?THYROXINE [LEVOTHYROXINE SODIUM] [Concomitant]
     Active Substance: LEVOTHYROXINE SODIUM
     Dosage: 1.5 DF, 1X/DAY (MORNING)
  2. NEURONTIN [Suspect]
     Active Substance: GABAPENTIN
     Dosage: 400 MG, 1X/DAY (EVENING)
     Dates: start: 20200331
  3. NEURONTIN [Suspect]
     Active Substance: GABAPENTIN
     Dosage: 500 MG, 1X/DAY (EVENING)
     Dates: start: 20200621, end: 20200622
  4. NEURONTIN [Suspect]
     Active Substance: GABAPENTIN
     Dosage: AT PROGRESSIVE INCREASED DOSE  INCREASE OF 100 MG ABOUT EVERY 15 DAYS.
     Dates: start: 202001
  5. NEURONTIN [Suspect]
     Active Substance: GABAPENTIN
     Dosage: 900 MG, 1X/DAY (EVENING)
     Dates: start: 202005
  6. NEURONTIN [Suspect]
     Active Substance: GABAPENTIN
     Indication: NEUROPATHY PERIPHERAL
     Dosage: 100 MG, 3X/DAY
     Dates: start: 20191028
  7. NEURONTIN [Suspect]
     Active Substance: GABAPENTIN
     Dosage: 100 MG MORNING AND NOON AND 200 MG EVENING
  8. KARDEGIC [Concomitant]
     Active Substance: ASPIRIN DL-LYSINE
     Dosage: UNK, 1X/DAY
  9. BISOPROLOL /HCTZ [Concomitant]
     Active Substance: BISOPROLOL FUMARATE\HYDROCHLOROTHIAZIDE
     Dosage: UNK, 1X/DAY
  10. NEURONTIN [Suspect]
     Active Substance: GABAPENTIN
     Dosage: 300 MG
     Dates: start: 20200227
  11. NEURONTIN [Suspect]
     Active Substance: GABAPENTIN
     Dosage: THE DOSE WAS REDUCED AT 100 MG EVERY 2 DAYS
     Dates: start: 201206
  12. RYTHMODAN [DISOPYRAMIDE] [Concomitant]
     Dosage: 250 UNK, 2X/DAY
  13. NEURONTIN [Suspect]
     Active Substance: GABAPENTIN
     Dosage: 700 MG, 1X/DAY (EVENING)
     Dates: start: 20200429
  14. NEURONTIN [Suspect]
     Active Substance: GABAPENTIN
     Dosage: 600 MG, 1X/DAY (EVENING)
     Dates: start: 20200614
  15. SIFROL [Concomitant]
     Active Substance: PRAMIPEXOLE
     Dosage: 0.5 DF, DAILY
     Dates: start: 20200224, end: 20200609

REACTIONS (3)
  - Vertigo [Unknown]
  - Hyperkinesia [Unknown]
  - Headache [Recovering/Resolving]

NARRATIVE: CASE EVENT DATE: 20191122
